FAERS Safety Report 25877813 (Version 1)
Quarter: 2025Q4

REPORT INFORMATION
  Report Type: Spontaneous
  Country: US (occurrence: US)
  Receive Date: 20251003
  Receipt Date: 20251003
  Transmission Date: 20260118
  Serious: Yes (Hospitalization)
  Sender: AMGEN
  Company Number: US-AMGEN-USASP2025195280

PATIENT
  Weight: 2.41 kg

DRUGS (2)
  1. DARBEPOETIN ALFA [Suspect]
     Active Substance: DARBEPOETIN ALFA
     Indication: Maternal exposure during pregnancy
     Dosage: UNK
     Route: 064
  2. PREDNISONE [Suspect]
     Active Substance: PREDNISONE
     Indication: Maternal exposure during pregnancy
     Dosage: UNK
     Route: 064

REACTIONS (3)
  - Premature baby [Unknown]
  - Low birth weight baby [Unknown]
  - Neonatal respiratory distress [Unknown]
